FAERS Safety Report 9644747 (Version 1)
Quarter: 2013Q4

REPORT INFORMATION
  Report Type: Spontaneous
  Country: US (occurrence: None)
  Receive Date: 20131023
  Receipt Date: 20131023
  Transmission Date: 20140711
  Serious: Yes (Disabling)
  Sender: FDA-Public Use
  Company Number: None

PATIENT
  Age: 89 Year
  Sex: Female
  Weight: 63.5 kg

DRUGS (1)
  1. LOVASTATIN [Suspect]
     Indication: BLOOD CHOLESTEROL INCREASED
     Dosage: HALF TABLET AT BEDTIME TAKEN BY MOUTH
     Route: 048

REACTIONS (4)
  - Pain in extremity [None]
  - Arthralgia [None]
  - Pelvic pain [None]
  - Muscular weakness [None]
